FAERS Safety Report 7715909-0 (Version None)
Quarter: 2011Q3

REPORT INFORMATION
  Report Type: 
  Country: None (occurrence: None)
  Receive Date: 20110823
  Receipt Date: 20110809
  Transmission Date: 20111222
  Serious: Yes (Life-Threatening, Hospitalization, Other)
  Sender: FDA-Public Use
  Company Number: GER/UKI/11/0020652

PATIENT
  Age: 72 Year
  Sex: Male
  Weight: 74 kg

DRUGS (8)
  1. SERTRALINE HYDROCHLORIDE [Suspect]
     Indication: DEPRESSION
     Dosage: 150 MG, 1 IN 1 D, ORAL
     Route: 048
     Dates: start: 20110401, end: 20110702
  2. FOLIC ACID [Concomitant]
  3. ALBUTEROL SULFATE [Concomitant]
  4. SIMVASTATIN [Concomitant]
  5. BACLOFEN [Concomitant]
  6. ASPIRIN [Concomitant]
  7. FLUDROCORTISONE ACETATE [Concomitant]
  8. GTN (GLYCERYL TRINITRATE) [Concomitant]

REACTIONS (5)
  - LOSS OF CONSCIOUSNESS [None]
  - SYNCOPE [None]
  - PALLOR [None]
  - ELECTROCARDIOGRAM QT PROLONGED [None]
  - VENTRICULAR TACHYCARDIA [None]
